FAERS Safety Report 18740435 (Version 1)
Quarter: 2021Q1

REPORT INFORMATION
  Report Type: Spontaneous
  Country: US (occurrence: US)
  Receive Date: 20210114
  Receipt Date: 20210114
  Transmission Date: 20210419
  Serious: Yes (Death)
  Sender: FDA-Public Use
  Company Number: None

PATIENT
  Sex: Male

DRUGS (9)
  1. CYPROHEPTAD [Concomitant]
  2. HUMIRA [Suspect]
     Active Substance: ADALIMUMAB
     Indication: CROHN^S DISEASE
     Route: 058
     Dates: start: 20190725
  3. ZYRTEC ALLGY [Concomitant]
  4. ALBUTEROL NEB [Concomitant]
     Active Substance: ALBUTEROL
  5. DESVENLAFAX [Concomitant]
  6. FLOVENT DISK AER [Concomitant]
  7. PREISTIQ [Concomitant]
  8. LEXAPRO [Concomitant]
     Active Substance: ESCITALOPRAM OXALATE
  9. ARIPPRAZOLE [Concomitant]

REACTIONS (1)
  - Death [None]
